FAERS Safety Report 8120666-2 (Version None)
Quarter: 2012Q1

REPORT INFORMATION
  Report Type: 
  Country: None (occurrence: None)
  Receive Date: 20120207
  Receipt Date: 20120201
  Transmission Date: 20120608
  Serious: Yes (Hospitalization, Other)
  Sender: FDA-Public Use
  Company Number: DE-ROCHE-753506

PATIENT
  Sex: Female
  Weight: 62 kg

DRUGS (7)
  1. PANTOPRAZOLE [Concomitant]
     Indication: PROPHYLAXIS
     Route: 048
  2. ACTEMRA [Suspect]
     Dosage: 400 MG ALSO GIVEN ON 27 OCT 2010, 29 SEP 2010 AND 24 AUG 2010 (LAST 4 ADMIN. REPORTED)
     Route: 042
  3. PREDNISOLONE [Suspect]
     Indication: RHEUMATOID ARTHRITIS
     Route: 048
     Dates: start: 20091028, end: 20101222
  4. ACTEMRA [Suspect]
     Indication: RHEUMATOID ARTHRITIS
     Route: 042
     Dates: start: 20091119, end: 20101124
  5. ETORICOXIB [Suspect]
     Indication: RHEUMATOID ARTHRITIS
     Route: 048
     Dates: start: 20091028, end: 20101222
  6. METHOTREXATE [Suspect]
     Indication: RHEUMATOID ARTHRITIS
     Route: 058
  7. CORTICOSTEROID NOS [Concomitant]
     Indication: RHEUMATOID ARTHRITIS
     Route: 048

REACTIONS (4)
  - DUODENAL ULCER PERFORATION [None]
  - INFECTIOUS PERITONITIS [None]
  - IMPAIRED HEALING [None]
  - HEPATITIS [None]
